FAERS Safety Report 17982171 (Version 1)
Quarter: 2020Q3

REPORT INFORMATION
  Report Type: Spontaneous
  Country: US (occurrence: US)
  Receive Date: 20200702
  Receipt Date: 20200702
  Transmission Date: 20201103
  Serious: Yes (Death)
  Sender: FDA-Public Use
  Company Number: None

PATIENT
  Age: 44 Year
  Sex: Male

DRUGS (8)
  1. VALPROIC [Concomitant]
     Active Substance: VALPROIC ACID
  2. NALTREXONE [Concomitant]
     Active Substance: NALTREXONE
  3. BIKTARVY [Suspect]
     Active Substance: BICTEGRAVIR SODIUM\EMTRICITABINE\TENOFOVIR ALAFENAMIDE FUMARATE
     Indication: HIV INFECTION
     Route: 048
     Dates: start: 20180727
  4. RISPERDONE [Concomitant]
     Active Substance: RISPERIDONE
  5. VALTREX [Concomitant]
     Active Substance: VALACYCLOVIR HYDROCHLORIDE
  6. IPRATROPOIM/ALBUTEROL [Concomitant]
  7. WARFARIN [Concomitant]
     Active Substance: WARFARIN
  8. OMPERAZOLE [Concomitant]
     Active Substance: OMEPRAZOLE

REACTIONS (1)
  - Death [None]

NARRATIVE: CASE EVENT DATE: 202006
